FAERS Safety Report 9577495 (Version 1)
Quarter: 2013Q4

REPORT INFORMATION
  Report Type: Spontaneous
  Country: US (occurrence: US)
  Receive Date: 20131001
  Receipt Date: 20131001
  Transmission Date: 20140711
  Serious: No
  Sender: FDA-Public Use
  Company Number: US-AMGEN-USASP2013008267

PATIENT
  Age: 50 Year
  Sex: Female

DRUGS (5)
  1. ENBREL [Suspect]
     Indication: RHEUMATOID ARTHRITIS
     Dosage: 50 MG, QWK
     Dates: start: 19980101
  2. PREDNISONE [Concomitant]
     Dosage: 7 UNK, UNK
  3. ORENCIA [Concomitant]
     Dosage: UNK
  4. ACTEMRA [Concomitant]
     Dosage: UNK
  5. HUMIRA [Concomitant]
     Dosage: UNK

REACTIONS (2)
  - Therapeutic response decreased [Recovered/Resolved]
  - Condition aggravated [Recovered/Resolved]
